FAERS Safety Report 4318828-5 (Version None)
Quarter: 2004Q1

REPORT INFORMATION
  Report Type: 
  Country: None (occurrence: None)
  Receive Date: 20040318
  Receipt Date: 20031222
  Transmission Date: 20041129
  Serious: Yes (Hospitalization, Other)
  Sender: FDA-Public Use
  Company Number: WAES 0401USA00146

PATIENT
  Age: 69 Year
  Sex: Male

DRUGS (10)
  1. FOSAMAX [Suspect]
     Indication: OSTEOPOROSIS
     Route: 048
     Dates: start: 20020719, end: 20031223
  2. TAGAMET [Concomitant]
     Indication: HEPATIC CIRRHOSIS
     Route: 048
     Dates: start: 20000308, end: 20031125
  3. TAGAMET [Concomitant]
     Indication: VARICES OESOPHAGEAL
     Route: 048
     Dates: start: 20000308, end: 20031125
  4. AMARYL [Concomitant]
     Indication: DIABETES MELLITUS
     Route: 048
     Dates: start: 20020419
  5. INTRON A [Suspect]
     Indication: MULTIPLE MYELOMA
     Route: 030
     Dates: start: 20030310, end: 20031118
  6. TAKEPRON [Concomitant]
     Route: 048
  7. MAGNESIUM OXIDE [Concomitant]
     Route: 048
  8. PREDONINE [Concomitant]
     Indication: MULTIPLE MYELOMA
     Route: 048
     Dates: start: 20000510
  9. URSO [Concomitant]
     Indication: HEPATIC CIRRHOSIS
     Route: 048
     Dates: start: 20020222
  10. BASEN [Concomitant]
     Indication: DIABETES MELLITUS
     Route: 048
     Dates: start: 20020419

REACTIONS (5)
  - CONDITION AGGRAVATED [None]
  - DUODENITIS HAEMORRHAGIC [None]
  - HEPATIC ENCEPHALOPATHY [None]
  - MULTIPLE MYELOMA [None]
  - PANCYTOPENIA [None]
